FAERS Safety Report 5616424-0 (Version None)
Quarter: 2008Q1

REPORT INFORMATION
  Report Type: 
  Country: None (occurrence: None)
  Receive Date: 20080207
  Receipt Date: 20080128
  Transmission Date: 20080703
  Serious: Yes (Hospitalization, Other)
  Sender: FDA-Public Use
  Company Number: JP-JNJFOC-20080104975

PATIENT
  Age: 49 Year
  Sex: Female

DRUGS (3)
  1. DUROTEP [Suspect]
     Route: 062
  2. DUROTEP [Suspect]
     Indication: PAIN MANAGEMENT
     Route: 062
  3. CHEMOTHERAPY [Concomitant]
     Indication: BREAST CANCER METASTATIC
     Route: 065

REACTIONS (2)
  - MYOCARDIAL INFARCTION [None]
  - WITHDRAWAL SYNDROME [None]
